FAERS Safety Report 14262868 (Version 1)
Quarter: 2017Q4

REPORT INFORMATION
  Report Type: Spontaneous
  Country: US (occurrence: US)
  Receive Date: 20171208
  Receipt Date: 20171208
  Transmission Date: 20180321
  Serious: No
  Sender: FDA-Public Use
  Company Number: US-AMGEN-USASP2017181634

PATIENT
  Age: 58 Year
  Sex: Female

DRUGS (1)
  1. ENBREL [Suspect]
     Active Substance: ETANERCEPT
     Indication: PRODUCT USED FOR UNKNOWN INDICATION
     Dosage: 50 MG, QWK
     Route: 058

REACTIONS (6)
  - Injection site pruritus [Unknown]
  - Nasal congestion [Not Recovered/Not Resolved]
  - Injection site warmth [Unknown]
  - Rhinorrhoea [Not Recovered/Not Resolved]
  - Snoring [Not Recovered/Not Resolved]
  - Injection site erythema [Unknown]
